FAERS Safety Report 6519145-5 (Version None)
Quarter: 2009Q4

REPORT INFORMATION
  Report Type: 
  Country: None (occurrence: None)
  Receive Date: 20091224
  Receipt Date: 20091224
  Transmission Date: 20100525
  Serious: No
  Sender: FDA-Public Use
  Company Number: None

PATIENT
  Sex: Female
  Weight: 117.9352 kg

DRUGS (1)
  1. MICARDIS [Suspect]
     Indication: HYPERTENSION
     Dosage: ONE 80MG TABLET ONCE A DAY PO
     Route: 048
     Dates: start: 19980101, end: 20091025

REACTIONS (2)
  - BLOOD POTASSIUM INCREASED [None]
  - TENDONITIS [None]
